FAERS Safety Report 20470064 (Version 1)
Quarter: 2022Q1

REPORT INFORMATION
  Report Type: Spontaneous
  Country: US (occurrence: US)
  Receive Date: 20220214
  Receipt Date: 20220214
  Transmission Date: 20220424
  Serious: No
  Sender: FDA-Public Use
  Company Number: US-KYOWAKIRIN-2022BKK001585

PATIENT

DRUGS (14)
  1. CRYSVITA [Suspect]
     Active Substance: BUROSUMAB-TWZA
     Indication: Hereditary hypophosphataemic rickets
     Dosage: 90 MG, MONTHLY
     Route: 065
     Dates: start: 202106
  2. CRYSVITA [Suspect]
     Active Substance: BUROSUMAB-TWZA
     Dosage: 85 MG, MONTHLY
     Route: 065
     Dates: start: 2019, end: 202106
  3. CEFDINIR [Concomitant]
     Active Substance: CEFDINIR
     Indication: Pneumonia
     Dosage: UNK
     Route: 065
  4. VITAMIN D3 [Concomitant]
     Active Substance: CHOLECALCIFEROL
     Indication: Vitamin D deficiency
     Dosage: 1 CAPSULE DAILY
     Route: 065
     Dates: start: 20220131
  5. VITAMIN D3 [Concomitant]
     Active Substance: CHOLECALCIFEROL
     Indication: Hereditary hypophosphataemic rickets
  6. RIOMET [METFORMIN] [Concomitant]
     Indication: Hyperglycaemia
     Dosage: 5 ML, BID
     Route: 048
     Dates: start: 20220131
  7. CYMBALTA [Concomitant]
     Active Substance: DULOXETINE HYDROCHLORIDE
     Indication: Product used for unknown indication
     Dosage: UNK
     Route: 065
  8. TRAZODONE HCL [Concomitant]
     Active Substance: TRAZODONE HYDROCHLORIDE
     Indication: Product used for unknown indication
     Dosage: UNK
     Route: 065
  9. TOPAMAX [Concomitant]
     Active Substance: TOPIRAMATE
     Indication: Product used for unknown indication
     Dosage: UNK
     Route: 065
  10. AMLODIPINE BESYLATE [Concomitant]
     Active Substance: AMLODIPINE BESYLATE
     Indication: Blood pressure increased
     Dosage: 1 EVERY DAY
     Route: 065
     Dates: start: 202112
  11. ATIVAN [Concomitant]
     Active Substance: LORAZEPAM
     Indication: Product used for unknown indication
     Dosage: UNK
     Route: 065
  12. BUSPAR [Concomitant]
     Active Substance: BUSPIRONE HYDROCHLORIDE
     Indication: Anxiety
     Dosage: 2 PO DAILY
     Route: 048
  13. LANTUS [Concomitant]
     Active Substance: INSULIN GLARGINE
     Indication: Product used for unknown indication
     Dosage: 20 IU
     Route: 065
  14. GLIMEPIRIDE [Concomitant]
     Active Substance: GLIMEPIRIDE
     Indication: Product used for unknown indication
     Dosage: 2 MG, BID
     Route: 065

REACTIONS (12)
  - Fatigue [Unknown]
  - Snoring [Unknown]
  - Dyspnoea [Unknown]
  - Insomnia [Unknown]
  - Weight abnormal [Unknown]
  - Gastrooesophageal reflux disease [Unknown]
  - Balance disorder [Unknown]
  - Alopecia [Unknown]
  - Amnesia [Unknown]
  - Mood altered [Unknown]
  - Temperature intolerance [Unknown]
  - Acanthosis nigricans [Unknown]
